FAERS Safety Report 7642682-7 (Version None)
Quarter: 2011Q3

REPORT INFORMATION
  Report Type: 
  Country: None (occurrence: None)
  Receive Date: 20110728
  Receipt Date: 20110711
  Transmission Date: 20111222
  Serious: No
  Sender: FDA-Public Use
  Company Number: US-B.I. PHARMACEUTICALS,INC./RIDGEFIELD-2011-BP-17442BP

PATIENT
  Age: 63 Year
  Sex: Female

DRUGS (1)
  1. SPIRIVA [Suspect]

REACTIONS (1)
  - TONGUE DISORDER [None]
